FAERS Safety Report 14782316 (Version 1)
Quarter: 2018Q2

REPORT INFORMATION
  Report Type: Spontaneous
  Country: FR (occurrence: FR)
  Receive Date: 20180420
  Receipt Date: 20180420
  Transmission Date: 20180711
  Serious: Yes (Other)
  Sender: FDA-Public Use
  Company Number: FR-MERCK KGAA-2046117

PATIENT
  Age: 40 Year
  Sex: Female

DRUGS (1)
  1. NOVOTHYROX [Suspect]
     Active Substance: LEVOTHYROXINE SODIUM
     Indication: PRODUCT USED FOR UNKNOWN INDICATION
     Dates: end: 201710

REACTIONS (18)
  - Mood altered [None]
  - Asthenia [None]
  - Migraine [Recovered/Resolved]
  - Abdominal pain upper [None]
  - Ill-defined disorder [None]
  - Visual impairment [None]
  - Dizziness [Recovered/Resolved]
  - Disturbance in attention [None]
  - Blood thyroid stimulating hormone [None]
  - Alopecia [Recovered/Resolved]
  - Anxiety [None]
  - Fatigue [None]
  - Vomiting [Recovered/Resolved]
  - Bedridden [Recovered/Resolved]
  - Loss of personal independence in daily activities [None]
  - Nausea [Recovered/Resolved]
  - Malaise [None]
  - Psychiatric symptom [None]

NARRATIVE: CASE EVENT DATE: 201706
